FAERS Safety Report 5035773-0 (Version None)
Quarter: 2006Q2

REPORT INFORMATION
  Report Type: 
  Country: None (occurrence: None)
  Receive Date: 20060526
  Receipt Date: 20051128
  Transmission Date: 20061013
  Serious: Yes (Hospitalization, Other)
  Sender: FDA-Public Use
  Company Number: 05-000918

PATIENT
  Age: 27 Year
  Sex: Female
  Weight: 72.6 kg

DRUGS (3)
  1. OVCON-35 [Suspect]
     Indication: CONTRACEPTION
     Dosage: 35/400 UG QD, ORAL
     Route: 048
     Dates: start: 20020101, end: 20051001
  2. OVCON-35 [Suspect]
     Indication: CONTRACEPTION
     Dosage: 35/400 UG QD, ORAL
     Route: 048
     Dates: start: 20051001, end: 20051121
  3. SINGULAIR ^DIECKMANN^ (MONTELUKAST SODIUM) TABLET, 10 MG [Concomitant]

REACTIONS (3)
  - DYSSTASIA [None]
  - PAIN IN EXTREMITY [None]
  - THROMBOSIS [None]
